FAERS Safety Report 5253403-X (Version None)
Quarter: 2007Q1

REPORT INFORMATION
  Report Type: 
  Country: None (occurrence: None)
  Receive Date: 20070226
  Receipt Date: 20070212
  Transmission Date: 20070707
  Serious: Yes (Hospitalization)
  Sender: FDA-Public Use
  Company Number: 2007PV029928

PATIENT
  Age: 74 Year
  Sex: Female

DRUGS (1)
  1. BYETTA [Suspect]
     Indication: DRUG USE FOR UNKNOWN INDICATION
     Dosage: 10 MCG;SC
     Route: 058

REACTIONS (2)
  - KNEE ARTHROPLASTY [None]
  - PHARMACEUTICAL PRODUCT COMPLAINT [None]
